FAERS Safety Report 17829401 (Version 1)
Quarter: 2020Q2

REPORT INFORMATION
  Report Type: Spontaneous
  Country: CN (occurrence: CN)
  Receive Date: 20200527
  Receipt Date: 20200527
  Transmission Date: 20200714
  Serious: Yes (Other)
  Sender: FDA-Public Use
  Company Number: CN-PFIZER INC-2020205054

PATIENT
  Age: 73 Year
  Sex: Male

DRUGS (4)
  1. DAUNORUBICIN HCL [Suspect]
     Active Substance: DAUNORUBICIN HYDROCHLORIDE
     Dosage: 40MG (DAY1-3)
     Dates: start: 20130410
  2. CYTARABINE. [Suspect]
     Active Substance: CYTARABINE
     Indication: CHEMOTHERAPY
     Dosage: 180 MG (DAY1-5)
     Dates: start: 20130307
  3. CYTARABINE. [Suspect]
     Active Substance: CYTARABINE
     Dosage: 150 MG(DAY1-3)
     Dates: start: 20130410
  4. DAUNORUBICIN HCL [Suspect]
     Active Substance: DAUNORUBICIN HYDROCHLORIDE
     Indication: CHEMOTHERAPY
     Dosage: 60 MG(DAY1-3)
     Dates: start: 20130307

REACTIONS (2)
  - Pneumonia [Unknown]
  - Granulocyte count decreased [Unknown]

NARRATIVE: CASE EVENT DATE: 2013
